FAERS Safety Report 17993109 (Version 2)
Quarter: 2020Q3

REPORT INFORMATION
  Report Type: Report from Study
  Country: None (occurrence: US)
  Receive Date: 20200707
  Receipt Date: 20200825
  Transmission Date: 20201103
  Serious: Yes (Other)
  Sender: FDA-Public Use
  Company Number: US-ABBVIE-20K-163-3471978-00

PATIENT
  Age: 58 Year
  Sex: Female
  Weight: 111.23 kg

DRUGS (1)
  1. HUMIRA [Suspect]
     Active Substance: ADALIMUMAB
     Indication: RHEUMATOID ARTHRITIS
     Route: 058

REACTIONS (8)
  - Injection site discomfort [Recovered/Resolved]
  - Systemic lupus erythematosus [Not Recovered/Not Resolved]
  - Injection site bruising [Recovered/Resolved]
  - Injection site discomfort [Unknown]
  - Injection site bruising [Unknown]
  - Injection site bruising [Recovered/Resolved]
  - Fibromyalgia [Not Recovered/Not Resolved]
  - Injection site discomfort [Recovered/Resolved]

NARRATIVE: CASE EVENT DATE: 20200617
